FAERS Safety Report 16921874 (Version 2)
Quarter: 2019Q4

REPORT INFORMATION
  Report Type: Spontaneous
  Country: FI (occurrence: FI)
  Receive Date: 20191015
  Receipt Date: 20191024
  Transmission Date: 20200122
  Serious: Yes (Hospitalization, Other)
  Sender: FDA-Public Use
  Company Number: NVSC2019FI002533

PATIENT
  Age: 41 Year
  Sex: Female

DRUGS (2)
  1. GILENYA [Suspect]
     Active Substance: FINGOLIMOD HYDROCHLORIDE
     Dosage: FIRST TWO WEEKS 50 MG ONCE DAILY THEN 50 MG ON 5 DAYS PER WEEK
     Route: 048
     Dates: start: 201906, end: 20190730
  2. GILENYA [Suspect]
     Active Substance: FINGOLIMOD HYDROCHLORIDE
     Indication: MULTIPLE SCLEROSIS
     Dosage: 50 MG, QD
     Route: 048
     Dates: start: 2015, end: 2018

REACTIONS (5)
  - Off label use [Unknown]
  - Pyelonephritis [Recovered/Resolved]
  - Lymphocyte count decreased [Recovered/Resolved]
  - Infection susceptibility increased [Unknown]
  - Lymphocyte count decreased [Recovered/Resolved]

NARRATIVE: CASE EVENT DATE: 201807
